FAERS Safety Report 5779932-8 (Version None)
Quarter: 2008Q2

REPORT INFORMATION
  Report Type: 
  Country: None (occurrence: None)
  Receive Date: 20080616
  Receipt Date: 20080509
  Transmission Date: 20081010
  Serious: Yes (Other)
  Sender: FDA-Public Use
  Company Number: 08-224

PATIENT
  Sex: Female

DRUGS (1)
  1. ALEVE [Suspect]
     Dosage: 440 MG, DAILY, ORAL
     Route: 048
     Dates: start: 20080503

REACTIONS (1)
  - HYPERSENSITIVITY [None]
